FAERS Safety Report 20182283 (Version 1)
Quarter: 2021Q4

REPORT INFORMATION
  Report Type: Spontaneous
  Country: US (occurrence: US)
  Receive Date: 20211214
  Receipt Date: 20211214
  Transmission Date: 20220303
  Serious: Yes (Other)
  Sender: FDA-Public Use
  Company Number: US-SA-2021SA410041

PATIENT
  Sex: Male

DRUGS (6)
  1. CABAZITAXEL [Suspect]
     Active Substance: CABAZITAXEL
     Dosage: UNK
  2. LUPRON [Concomitant]
     Active Substance: LEUPROLIDE ACETATE
     Dosage: UNK
  3. ENZALUTAMIDE [Concomitant]
     Active Substance: ENZALUTAMIDE
     Dosage: UNK
  4. ABIRATERONE [Concomitant]
     Active Substance: ABIRATERONE
     Dosage: UNK
  5. PREDNISONE [Concomitant]
     Active Substance: PREDNISONE
     Dosage: UNK
  6. DOCETAXEL [Concomitant]
     Active Substance: DOCETAXEL
     Dosage: UNK

REACTIONS (2)
  - Prostate cancer [Unknown]
  - Disease progression [Unknown]
